FAERS Safety Report 4500194-3 (Version None)
Quarter: 2004Q3

REPORT INFORMATION
  Report Type: 
  Country: None (occurrence: None)
  Receive Date: 20040927
  Receipt Date: 20040825
  Transmission Date: 20050211
  Serious: No
  Sender: FDA-Public Use
  Company Number: USA040772592

PATIENT
  Age: 37 Year
  Sex: Female
  Weight: 68 kg

DRUGS (3)
  1. STRATTERA [Suspect]
     Indication: ATTENTION DEFICIT/HYPERACTIVITY DISORDER
     Dosage: 40 MG DAY
     Dates: start: 20040601
  2. PROZAC [Suspect]
     Indication: STRESS SYMPTOMS
     Dosage: 20 MG
  3. ESTRADIOL [Concomitant]

REACTIONS (6)
  - FORMICATION [None]
  - HEAD DISCOMFORT [None]
  - NAUSEA [None]
  - PILOERECTION [None]
  - TEMPERATURE INTOLERANCE [None]
  - VISUAL DISTURBANCE [None]
